FAERS Safety Report 8581984-7 (Version None)
Quarter: 2012Q3

REPORT INFORMATION
  Report Type: 
  Country: None (occurrence: None)
  Receive Date: 20120809
  Receipt Date: 20120730
  Transmission Date: 20120928
  Serious: Yes (Other)
  Sender: FDA-Public Use
  Company Number: JP-ALLERGAN-1210743US

PATIENT
  Age: 81 Year
  Sex: Male

DRUGS (1)
  1. LUMIGAN [Suspect]
     Indication: NORMAL TENSION GLAUCOMA
     Dosage: 1 GTT OS, QD
     Route: 047
     Dates: start: 20110715

REACTIONS (2)
  - PROSTATE CANCER [None]
  - PUNCTATE KERATITIS [None]
